FAERS Safety Report 11526091 (Version 1)
Quarter: 2015Q3

REPORT INFORMATION
  Report Type: Spontaneous
  Country: US (occurrence: US)
  Receive Date: 20150918
  Receipt Date: 20150918
  Transmission Date: 20151125
  Serious: Yes (Other)
  Sender: FDA-Public Use
  Company Number: US-BAUSCH-BL-2015-021555

PATIENT
  Sex: Male

DRUGS (1)
  1. XIFAXAN [Suspect]
     Active Substance: RIFAXIMIN
     Indication: PRODUCT USED FOR UNKNOWN INDICATION
     Route: 065

REACTIONS (8)
  - Liver disorder [Unknown]
  - Contusion [Unknown]
  - Dizziness [Unknown]
  - Ammonia increased [Unknown]
  - Alcoholic [Unknown]
  - Back pain [Unknown]
  - Fatigue [Unknown]
  - Internal haemorrhage [Unknown]
